FAERS Safety Report 6765007-8 (Version None)
Quarter: 2010Q2

REPORT INFORMATION
  Report Type: 
  Country: None (occurrence: None)
  Receive Date: 20100609
  Receipt Date: 20100504
  Transmission Date: 20101027
  Serious: No
  Sender: FDA-Public Use
  Company Number: 2010010954

PATIENT
  Age: 1 Year
  Sex: Male

DRUGS (2)
  1. CHILDREN'S ZYRTEC ALLERGY [Suspect]
     Indication: HYPERSENSITIVITY
     Dosage: 0.5 TSP EVERY NIGHT ORAL
     Route: 048
     Dates: start: 20100204, end: 20100504
  2. LANSOPRAZOLE [Concomitant]

REACTIONS (4)
  - EYE DISORDER [None]
  - NASOPHARYNGITIS [None]
  - PRODUCT QUALITY ISSUE [None]
  - WRONG DRUG ADMINISTERED [None]
